FAERS Safety Report 17290270 (Version 1)
Quarter: 2020Q1

REPORT INFORMATION
  Report Type: Spontaneous
  Country: US (occurrence: US)
  Receive Date: 20200121
  Receipt Date: 20200121
  Transmission Date: 20200409
  Serious: Yes (Hospitalization)
  Sender: FDA-Public Use
  Company Number: US-TEVA-2020-US-1171100

PATIENT
  Age: 31 Year
  Sex: Male

DRUGS (1)
  1. LOPERAMIDE [Suspect]
     Active Substance: LOPERAMIDE
     Dosage: MORE THAN 100 TABLETS OF LOPERAMIDE 8MG DAILY FOR OVER A YEAR
     Route: 048

REACTIONS (5)
  - Drug abuse [Recovering/Resolving]
  - Intentional overdose [Recovering/Resolving]
  - Toxicity to various agents [Recovering/Resolving]
  - Cardiomyopathy [Recovering/Resolving]
  - Arrhythmia [Recovering/Resolving]
